FAERS Safety Report 7752427-8 (Version None)
Quarter: 2011Q3

REPORT INFORMATION
  Report Type: 
  Country: None (occurrence: None)
  Receive Date: 20110915
  Receipt Date: 20110909
  Transmission Date: 20111222
  Serious: Yes (Hospitalization, Disabling)
  Sender: FDA-Public Use
  Company Number: PHEH2011US03844

PATIENT
  Sex: Female

DRUGS (8)
  1. NIASPAN [Concomitant]
     Dosage: 500 MG, UNK
  2. BENICAR [Concomitant]
     Dosage: 40 MG, QD
  3. RECLAST [Suspect]
     Indication: OSTEOPOROSIS
     Dosage: 5 MG, UNK
     Route: 042
     Dates: start: 20110318
  4. ASPIRIN [Concomitant]
     Dosage: 81 MG, UNK
  5. NAPROXEN (ALEVE) [Concomitant]
     Dosage: UNK UKN, UNK
  6. CRESTOR [Concomitant]
     Dosage: 10 MG, QD
  7. CLONAZEPAM [Concomitant]
     Dosage: 5 MG, BID
  8. CALCIUM WITH VITAMIN D [Concomitant]
     Dosage: 600 MG, BID

REACTIONS (2)
  - FEMUR FRACTURE [None]
  - FALL [None]
